FAERS Safety Report 6492922-5 (Version None)
Quarter: 2009Q4

REPORT INFORMATION
  Report Type: 
  Country: None (occurrence: None)
  Receive Date: 20091214
  Receipt Date: 20091204
  Transmission Date: 20100525
  Serious: Yes (Other)
  Sender: FDA-Public Use
  Company Number: PHHY2009MX45139

PATIENT
  Sex: Female

DRUGS (3)
  1. DIOVAN [Suspect]
     Indication: HYPERTENSION
     Dosage: 80 MG, 1 TABLET PER DAY
     Route: 048
     Dates: start: 20050701
  2. PLAVIX [Concomitant]
     Indication: CEREBRAL THROMBOSIS
     Dosage: UNK
     Dates: start: 20070801
  3. NORVASC [Concomitant]
     Indication: HYPERTENSION
     Dosage: UNK

REACTIONS (5)
  - BALANCE DISORDER [None]
  - BLINDNESS UNILATERAL [None]
  - CEREBRAL INFARCTION [None]
  - CEREBRAL THROMBOSIS [None]
  - GAIT DISTURBANCE [None]
